FAERS Safety Report 4285333-4 (Version None)
Quarter: 2004Q1

REPORT INFORMATION
  Report Type: 
  Country: None (occurrence: None)
  Receive Date: 20040202
  Receipt Date: 20040119
  Transmission Date: 20041129
  Serious: Yes (Life-Threatening, Disabling, Other)
  Sender: FDA-Public Use
  Company Number: 2004196401AU

PATIENT
  Age: 46 Year
  Sex: Female

DRUGS (1)
  1. DEPO-PROVERA [Suspect]
     Indication: CONTRACEPTION
     Dosage: 150MG, SINGLE, INTRAMUSCULAR
     Route: 030
     Dates: start: 19950119, end: 19950119

REACTIONS (16)
  - ABDOMINAL PAIN [None]
  - ARTHRALGIA [None]
  - BODY TEMPERATURE INCREASED [None]
  - CHEST PAIN [None]
  - DIFFICULTY IN WALKING [None]
  - DIZZINESS [None]
  - HEART RATE INCREASED [None]
  - HEART RATE IRREGULAR [None]
  - HOT FLUSH [None]
  - HYPOAESTHESIA [None]
  - INFERTILITY [None]
  - LOSS OF LIBIDO [None]
  - NAUSEA [None]
  - RESPIRATORY ARREST [None]
  - TREMOR [None]
  - WEIGHT DECREASED [None]
